FAERS Safety Report 6245123-X (Version None)
Quarter: 2009Q2

REPORT INFORMATION
  Report Type: 
  Country: None (occurrence: None)
  Receive Date: 20090619
  Receipt Date: 20090417
  Transmission Date: 20091009
  Serious: No
  Sender: FDA-Public Use
  Company Number: ALL1-2009-00843

PATIENT
  Age: 10 Year
  Sex: Male
  Weight: 27.2 kg

DRUGS (5)
  1. VYVANSE [Suspect]
     Indication: ATTENTION DEFICIT/HYPERACTIVITY DISORDER
     Dosage: 40 MG, 1X/DAY:QD, ORAL
     Route: 048
     Dates: start: 20080101
  2. SINGULAIR /01362601/ (MONTELUKAST) [Concomitant]
  3. PULMICORT [Concomitant]
  4. PERIACTIN [Concomitant]
  5. XOPENEX [Concomitant]

REACTIONS (1)
  - ABNORMAL BEHAVIOUR [None]
